FAERS Safety Report 6582121-0 (Version None)
Quarter: 2010Q1

REPORT INFORMATION
  Report Type: 
  Country: None (occurrence: None)
  Receive Date: 20100216
  Receipt Date: 20100205
  Transmission Date: 20100710
  Serious: Yes (Other)
  Sender: FDA-Public Use
  Company Number: US-RB-002610-10

PATIENT
  Age: 57 Year
  Sex: Female

DRUGS (1)
  1. MUCINEX D MAXIMUM STRENGTH [Suspect]
     Indication: SINUS CONGESTION
     Dosage: TOOK TWO DOSES OF ONE TABLET 12 HOURS APART
     Route: 048

REACTIONS (3)
  - ARRHYTHMIA [None]
  - BRONCHITIS [None]
  - MYOCARDIAL INFARCTION [None]
